FAERS Safety Report 9022308 (Version 4)
Quarter: 2014Q2

REPORT INFORMATION
  Report Type: Spontaneous
  Country: US (occurrence: US)
  Receive Date: 20130118
  Receipt Date: 20140407
  Transmission Date: 20141212
  Serious: Yes (Hospitalization, Other)
  Sender: FDA-Public Use
  Company Number: US-009507513-1301USA007512

PATIENT
  Sex: Female
  Weight: 65.76 kg

DRUGS (4)
  1. FOSAMAX [Suspect]
     Indication: OSTEOPOROSIS
     Dosage: 10 MG, QW
     Route: 048
     Dates: start: 2000, end: 201109
  2. FOSAMAX [Suspect]
     Dosage: 70 MG, QW
     Route: 048
     Dates: start: 20001017, end: 2008
  3. ALENDRONATE SODIUM [Suspect]
     Indication: OSTEOPOROSIS
     Dosage: 70 MG, QW
     Route: 048
     Dates: start: 20090819, end: 201202
  4. FOSAMAX PLUS D [Suspect]
     Route: 048

REACTIONS (39)
  - Intramedullary rod insertion [Unknown]
  - Arthrodesis [Unknown]
  - Gastric ulcer surgery [Unknown]
  - Spinal laminectomy [Unknown]
  - Surgery [Unknown]
  - Surgery [Unknown]
  - Peripheral nerve operation [Unknown]
  - Femur fracture [Unknown]
  - Low turnover osteopathy [Unknown]
  - Inappropriate schedule of drug administration [Unknown]
  - Essential hypertension [Unknown]
  - Blood cholesterol increased [Unknown]
  - Spinal osteoarthritis [Unknown]
  - Intervertebral disc degeneration [Unknown]
  - Intervertebral disc protrusion [Unknown]
  - Myelomalacia [Unknown]
  - Cervical spinal stenosis [Unknown]
  - Intervertebral disc disorder [Unknown]
  - Cataract [Unknown]
  - Cataract operation [Unknown]
  - Ligament disorder [Unknown]
  - Neck surgery [Unknown]
  - Anaemia [Unknown]
  - Migraine [Not Recovered/Not Resolved]
  - Rhinitis [Unknown]
  - Irritable bowel syndrome [Unknown]
  - Osteoarthritis [Unknown]
  - Lumbar spinal stenosis [Unknown]
  - Spondylolisthesis [Unknown]
  - Spinal cord injury [Unknown]
  - Urge incontinence [Unknown]
  - Seborrhoeic keratosis [Unknown]
  - Impaired fasting glucose [Unknown]
  - Pulmonary hypertension [Unknown]
  - Osteoarthritis [Unknown]
  - Ulcer haemorrhage [Unknown]
  - Gastrooesophageal reflux disease [Unknown]
  - Gastric ulcer [Unknown]
  - Back pain [Unknown]
